FAERS Safety Report 13203646 (Version 1)
Quarter: 2017Q1

REPORT INFORMATION
  Report Type: Spontaneous
  Country: US (occurrence: US)
  Receive Date: 20170208
  Receipt Date: 20170208
  Transmission Date: 20170428
  Serious: No
  Sender: FDA-Public Use
  Company Number: US-AMGEN-USASP2016096141

PATIENT
  Sex: Male

DRUGS (2)
  1. NEULASTA [Suspect]
     Active Substance: PEGFILGRASTIM
     Indication: NEUTROPENIA
     Dosage: 6 MG, UNK, EACH CHEMOTHERAPY CYCLE
     Route: 065
     Dates: start: 20160716
  2. CLARITIN [Concomitant]
     Active Substance: LORATADINE
     Indication: PROPHYLAXIS
     Dosage: UNK

REACTIONS (6)
  - Headache [Not Recovered/Not Resolved]
  - Hypotension [Unknown]
  - Back pain [Not Recovered/Not Resolved]
  - Arthralgia [Not Recovered/Not Resolved]
  - Insomnia [Not Recovered/Not Resolved]
  - Pain in extremity [Not Recovered/Not Resolved]

NARRATIVE: CASE EVENT DATE: 201607
